FAERS Safety Report 10007705 (Version 2)
Quarter: 2014Q1

REPORT INFORMATION
  Report Type: Spontaneous
  Country: US (occurrence: US)
  Receive Date: 20140313
  Receipt Date: 20140313
  Transmission Date: 20141002
  Serious: No
  Sender: FDA-Public Use
  Company Number: US-GILEAD-2012-0065746

PATIENT
  Age: 70 Year
  Sex: Female

DRUGS (1)
  1. LETAIRIS [Suspect]
     Indication: PULMONARY HYPERTENSION
     Dosage: 10 MG, QD
     Route: 048
     Dates: start: 20121110, end: 20130101

REACTIONS (7)
  - Fluid retention [Unknown]
  - Headache [Unknown]
  - Nasal congestion [Unknown]
  - Constipation [Unknown]
  - Fatigue [Unknown]
  - Local swelling [Unknown]
  - Swelling [Unknown]
